FAERS Safety Report 5562770-9 (Version None)
Quarter: 2007Q4

REPORT INFORMATION
  Report Type: 
  Country: None (occurrence: None)
  Receive Date: 20071217
  Receipt Date: 20071203
  Transmission Date: 20080405
  Serious: Yes (Hospitalization)
  Sender: FDA-Public Use
  Company Number: BR-AMGEN-UK251026

PATIENT
  Age: 35 Year
  Sex: Female
  Weight: 85 kg

DRUGS (6)
  1. NEULASTIM [Suspect]
     Indication: CHEMOTHERAPY
     Route: 058
     Dates: start: 20071005, end: 20071005
  2. DOCETAXEL [Concomitant]
     Dates: start: 20070801
  3. DOXORUBICIN HYDROCHLORIDE [Concomitant]
     Dates: start: 20070801
  4. CYCLOPHOSPHAMIDE [Concomitant]
     Dates: start: 20070801
  5. METOCLOPRAMIDE HYDROCHLORIDE [Concomitant]
     Dates: start: 20071004, end: 20071007
  6. DEXAMETHASONE TAB [Concomitant]
     Dates: start: 20071004, end: 20071007

REACTIONS (2)
  - JOINT HYPEREXTENSION [None]
  - NECK PAIN [None]
